APPROVED DRUG PRODUCT: CEFADROXIL
Active Ingredient: CEFADROXIL/CEFADROXIL HEMIHYDRATE
Strength: EQ 500MG BASE
Dosage Form/Route: CAPSULE;ORAL
Application: A065311 | Product #001
Applicant: HIKMA PHARMACEUTICALS
Approved: Feb 7, 2006 | RLD: No | RS: No | Type: DISCN